FAERS Safety Report 7274683-5 (Version None)
Quarter: 2011Q1

REPORT INFORMATION
  Report Type: 
  Country: None (occurrence: None)
  Receive Date: 20110202
  Receipt Date: 20110202
  Transmission Date: 20110831
  Serious: Yes (Life-Threatening, Hospitalization, Other)
  Sender: FDA-Public Use
  Company Number: None

PATIENT
  Age: 83 Year
  Sex: Male

DRUGS (1)
  1. LINGLUTIDE VICTOZA [Suspect]
     Dosage: 1.2 MG SUBQ DAILY
     Dates: start: 20101109, end: 20101123

REACTIONS (7)
  - VOMITING [None]
  - DEHYDRATION [None]
  - WEIGHT DECREASED [None]
  - URINE OUTPUT DECREASED [None]
  - CHILLS [None]
  - RENAL FAILURE ACUTE [None]
  - DECREASED APPETITE [None]
